FAERS Safety Report 10745356 (Version 1)
Quarter: 2015Q1

REPORT INFORMATION
  Report Type: Spontaneous
  Country: DE (occurrence: DE)
  Receive Date: 20150128
  Receipt Date: 20150128
  Transmission Date: 20150721
  Serious: Yes (Congenital Anomaly, Other)
  Sender: FDA-Public Use
  Company Number: DE-MYLANLABS-2015M1001696

PATIENT

DRUGS (6)
  1. OMEPRAZOLE. [Concomitant]
     Active Substance: OMEPRAZOLE
     Route: 064
  2. PREDNISOLONE. [Concomitant]
     Active Substance: PREDNISOLONE
     Route: 064
  3. METHOTREXATE [Suspect]
     Active Substance: METHOTREXATE
     Dosage: 15 MG/WEEK FROM BEFORE PREGNANCY UNTIL 2 WEEKS AND 2 DAYS AFTER LMP
     Route: 064
  4. ADALIMUMAB [Concomitant]
     Active Substance: ADALIMUMAB
     Route: 064
  5. IBUPROFEN. [Concomitant]
     Active Substance: IBUPROFEN
     Route: 064
  6. ETANERCEPT [Concomitant]
     Active Substance: ETANERCEPT
     Route: 064

REACTIONS (7)
  - Congenital pulmonary hypertension [Unknown]
  - Bundle branch block right [Unknown]
  - Foetal exposure during pregnancy [Unknown]
  - Congenital cystic lung [Unknown]
  - Patent ductus arteriosus [Unknown]
  - Atrial septal defect [Unknown]
  - Pericardial effusion [Unknown]
